FAERS Safety Report 15932822 (Version 1)
Quarter: 2019Q1

REPORT INFORMATION
  Report Type: Spontaneous
  Country: US (occurrence: US)
  Receive Date: 20190207
  Receipt Date: 20190207
  Transmission Date: 20190417
  Serious: No
  Sender: FDA-Public Use
  Company Number: US-MYLANLABS-2019M1006153

PATIENT
  Sex: Female

DRUGS (2)
  1. TAMOXIFEN MYLAN [Suspect]
     Active Substance: TAMOXIFEN
     Indication: PRODUCT USED FOR UNKNOWN INDICATION
     Dosage: UNK
     Dates: start: 2011
  2. TAMOXIFEN MYLAN [Suspect]
     Active Substance: TAMOXIFEN
     Dosage: UNK
     Dates: start: 201802, end: 201812

REACTIONS (2)
  - Alopecia [Unknown]
  - Product substitution issue [Unknown]
